FAERS Safety Report 7814645-X (Version None)
Quarter: 2011Q4

REPORT INFORMATION
  Report Type: 
  Country: None (occurrence: None)
  Receive Date: 20111014
  Receipt Date: 20110930
  Transmission Date: 20120403
  Serious: Yes (Other)
  Sender: FDA-Public Use
  Company Number: US-BAYER-2011-022534

PATIENT
  Age: 18 Year
  Sex: Female
  Weight: 65.76 kg

DRUGS (3)
  1. MINOCYCLINE HCL [Concomitant]
     Dosage: 100 MG, UNK
     Route: 048
     Dates: start: 20060101
  2. TRETINOIN [Concomitant]
     Route: 061
  3. YASMIN [Suspect]
     Indication: ACNE
     Dosage: UNK
     Dates: start: 20060901, end: 20061201

REACTIONS (2)
  - OEDEMA PERIPHERAL [None]
  - DEEP VEIN THROMBOSIS [None]
